FAERS Safety Report 14836122 (Version 2)
Quarter: 2018Q2

REPORT INFORMATION
  Report Type: Spontaneous
  Country: US (occurrence: US)
  Receive Date: 20180502
  Receipt Date: 20180504
  Transmission Date: 20180711
  Serious: No
  Sender: FDA-Public Use
  Company Number: US-PFIZER INC-2018176195

PATIENT
  Sex: Female
  Weight: 56 kg

DRUGS (3)
  1. SIMVASTATIN. [Concomitant]
     Active Substance: SIMVASTATIN
     Indication: BLOOD CHOLESTEROL INCREASED
     Dosage: 40 MG, ONCE A DAY, ^EVERY NIGHT^
  2. LYRICA [Suspect]
     Active Substance: PREGABALIN
     Indication: NERVE INJURY
     Dosage: 25 MG, ONCE A DAY, ^AT NIGHT^
     Route: 048
  3. LEVOTHYROXINE. [Concomitant]
     Active Substance: LEVOTHYROXINE
     Dosage: 0.5 MG, UNK

REACTIONS (4)
  - Dizziness [Unknown]
  - Malaise [Unknown]
  - Expired product administered [Unknown]
  - Drug ineffective [Not Recovered/Not Resolved]
